FAERS Safety Report 5690350-3 (Version None)
Quarter: 2008Q1

REPORT INFORMATION
  Report Type: 
  Country: None (occurrence: None)
  Receive Date: 20080331
  Receipt Date: 20080331
  Transmission Date: 20080703
  Serious: No
  Sender: FDA-Public Use
  Company Number: None

PATIENT
  Sex: Male
  Weight: 90.7194 kg

DRUGS (3)
  1. ZYRTEC [Suspect]
     Indication: ASTHMA
     Dosage: 5-10MG ONCE DAILY PO
     Route: 048
     Dates: start: 20071215, end: 20080315
  2. ZYRTEC [Suspect]
     Indication: DERMATITIS CONTACT
     Dosage: 5-10MG ONCE DAILY PO
     Route: 048
     Dates: start: 20071215, end: 20080315
  3. ZYRTEC [Suspect]
     Indication: RHINITIS ALLERGIC
     Dosage: 5-10MG ONCE DAILY PO
     Route: 048
     Dates: start: 20071215, end: 20080315

REACTIONS (1)
  - DEPRESSION [None]
